FAERS Safety Report 19768493 (Version 1)
Quarter: 2021Q3

REPORT INFORMATION
  Report Type: Spontaneous
  Country: US (occurrence: US)
  Receive Date: 20210830
  Receipt Date: 20210830
  Transmission Date: 20211014
  Serious: No
  Sender: FDA-Public Use
  Company Number: US-AMGEN INC.-USASP2021130857

PATIENT

DRUGS (4)
  1. GALCANEZUMAB [Concomitant]
     Active Substance: GALCANEZUMAB
  2. ERENUMAB [Suspect]
     Active Substance: ERENUMAB
     Indication: MIGRAINE
     Dosage: UNK
     Route: 065
  3. FREMANEZUMAB [Concomitant]
     Active Substance: FREMANEZUMAB
  4. ONABOTULINUMTOXINA [Concomitant]
     Active Substance: ONABOTULINUMTOXINA

REACTIONS (4)
  - Therapy non-responder [Unknown]
  - Headache [Unknown]
  - Injection site irritation [Unknown]
  - Constipation [Unknown]
